FAERS Safety Report 14016120 (Version 2)
Quarter: 2017Q4

REPORT INFORMATION
  Report Type: Report from Study
  Country: US (occurrence: US)
  Receive Date: 20170927
  Receipt Date: 20171010
  Transmission Date: 20180321
  Serious: Yes (Death, Hospitalization, Other)
  Sender: FDA-Public Use
  Company Number: US-IPSEN BIOPHARMACEUTICALS, INC.-2017-05805

PATIENT
  Sex: Male
  Weight: 45.36 kg

DRUGS (11)
  1. SOMATULINE [Suspect]
     Active Substance: LANREOTIDE ACETATE
     Indication: CARCINOID TUMOUR OF THE GASTROINTESTINAL TRACT
     Dosage: 60 MG
     Route: 030
     Dates: start: 201507, end: 2016
  2. SOMATULINE [Suspect]
     Active Substance: LANREOTIDE ACETATE
     Indication: CARCINOID SYNDROME
     Dosage: 120 MG
     Route: 030
     Dates: start: 2016
  3. VITAMIN K [Concomitant]
     Active Substance: PHYTONADIONE
  4. IRON [Concomitant]
     Active Substance: IRON
  5. SANDOSTATIN [Suspect]
     Active Substance: OCTREOTIDE ACETATE
     Indication: CARCINOID TUMOUR OF THE GASTROINTESTINAL TRACT
     Dates: start: 201505
  6. CAPECITABINE. [Suspect]
     Active Substance: CAPECITABINE
     Indication: CARCINOID TUMOUR OF THE GASTROINTESTINAL TRACT
     Route: 048
     Dates: start: 201612
  7. CAPECITABINE. [Suspect]
     Active Substance: CAPECITABINE
     Indication: CARCINOID SYNDROME
  8. SANDOSTATIN [Suspect]
     Active Substance: OCTREOTIDE ACETATE
     Indication: CARCINOID SYNDROME
  9. TEMOZOLOMIDE. [Suspect]
     Active Substance: TEMOZOLOMIDE
     Indication: CARCINOID TUMOUR OF THE GASTROINTESTINAL TRACT
     Route: 048
     Dates: start: 201612
  10. TEMOZOLOMIDE. [Suspect]
     Active Substance: TEMOZOLOMIDE
     Indication: CARCINOID SYNDROME
  11. MAGNESIUM [Concomitant]
     Active Substance: MAGNESIUM

REACTIONS (15)
  - Intestinal obstruction [Not Recovered/Not Resolved]
  - Injection site pain [Recovered/Resolved]
  - Hepatic neoplasm [Unknown]
  - Pelvic mass [Unknown]
  - Drug ineffective [Unknown]
  - Neoplasm progression [Fatal]
  - Post procedural sepsis [Recovered/Resolved]
  - Ureteral disorder [Unknown]
  - Hydronephrosis [Unknown]
  - Epiphyses premature fusion [Unknown]
  - Malaise [Unknown]
  - Short-bowel syndrome [Unknown]
  - Kyphosis [Unknown]
  - Urinary tract infection [Not Recovered/Not Resolved]
  - Incorrect route of drug administration [Unknown]

NARRATIVE: CASE EVENT DATE: 2015
